FAERS Safety Report 9737051 (Version 2)
Quarter: 2013Q4

REPORT INFORMATION
  Report Type: Spontaneous
  Country: IT (occurrence: IT)
  Receive Date: 20131206
  Receipt Date: 20131230
  Transmission Date: 20140711
  Serious: Yes (Hospitalization)
  Sender: FDA-Public Use
  Company Number: IT-WATSON-2013-22634

PATIENT
  Age: 23 Year
  Sex: Female

DRUGS (5)
  1. DIAZEPAM (UNKNOWN) [Suspect]
     Indication: SUICIDE ATTEMPT
     Dosage: 20 DF, SINGLE
     Route: 048
     Dates: start: 20131021, end: 20131021
  2. PAROXETINE (UNKNOWN) [Suspect]
     Indication: SUICIDE ATTEMPT
     Dosage: 200 MG, SINGLE
     Route: 048
     Dates: start: 20131021, end: 20131021
  3. PAROXETINE (UNKNOWN) [Suspect]
     Dosage: 20 MG, UNK
     Route: 048
     Dates: start: 20130724
  4. TOLEP [Suspect]
     Indication: SUICIDE ATTEMPT
     Dosage: 6 DF, SINGLE
     Route: 048
     Dates: start: 20131021, end: 20131021
  5. TOLEP [Suspect]
     Dosage: 600 MG, UNK
     Route: 048
     Dates: start: 20130724

REACTIONS (3)
  - Drug abuse [Recovered/Resolved]
  - Sopor [Recovered/Resolved]
  - Suicidal ideation [Recovered/Resolved]
